FAERS Safety Report 25338089 (Version 1)
Quarter: 2025Q2

REPORT INFORMATION
  Report Type: Spontaneous
  Country: GB (occurrence: GB)
  Receive Date: 20250520
  Receipt Date: 20250520
  Transmission Date: 20250717
  Serious: Yes (Life-Threatening, Hospitalization, Other)
  Sender: ELI LILLY AND COMPANY
  Company Number: None

PATIENT
  Age: 61 Year
  Sex: Female
  Weight: 71 kg

DRUGS (3)
  1. MOUNJARO [Suspect]
     Active Substance: TIRZEPATIDE
     Indication: Weight control
     Route: 065
     Dates: start: 20250311
  2. DEXTROSE [Suspect]
     Active Substance: DEXTROSE MONOHYDRATE
     Indication: Hypoglycaemia
     Route: 042
  3. CITALOPRAM [Concomitant]
     Active Substance: CITALOPRAM
     Indication: Depression

REACTIONS (7)
  - Hypoglycaemia [Recovered/Resolved]
  - Syncope [Unknown]
  - Loss of consciousness [Unknown]
  - Hyperglycaemia [Recovered/Resolved]
  - Decreased appetite [Recovered/Resolved]
  - Hypophagia [Unknown]
  - Malaise [Unknown]

NARRATIVE: CASE EVENT DATE: 20250402
